FAERS Safety Report 4922108-4 (Version None)
Quarter: 2006Q1

REPORT INFORMATION
  Report Type: 
  Country: None (occurrence: None)
  Receive Date: 20060222
  Receipt Date: 20060222
  Transmission Date: 20060701
  Serious: No
  Sender: FDA-Public Use
  Company Number: None

PATIENT
  Sex: 0
  Weight: 89.5 kg

DRUGS (4)
  1. BACTRIM DS [Suspect]
     Indication: CATHETER SITE INFECTION
     Dosage: COTRIMOXAZOLE (DS) BID PO
     Route: 048
     Dates: start: 20051110, end: 20051125
  2. BACTRIM DS [Suspect]
     Indication: STAPHYLOCOCCAL INFECTION
     Dosage: COTRIMOXAZOLE (DS) BID PO
     Route: 048
     Dates: start: 20051110, end: 20051125
  3. LISINOPRIL [Suspect]
     Indication: DIABETES MELLITUS NON-INSULIN-DEPENDENT
     Dosage: LISINOPRIL 20MG QDAILY PO
     Route: 048
     Dates: start: 19980101
  4. LISINOPRIL [Suspect]
     Indication: RENAL FAILURE CHRONIC
     Dosage: LISINOPRIL 20MG QDAILY PO
     Route: 048
     Dates: start: 19980101

REACTIONS (1)
  - HYPERKALAEMIA [None]
